FAERS Safety Report 20687475 (Version 1)
Quarter: 2022Q2

REPORT INFORMATION
  Report Type: Spontaneous
  Country: US (occurrence: US)
  Receive Date: 20220408
  Receipt Date: 20220408
  Transmission Date: 20220720
  Serious: Yes (Other)
  Sender: FDA-Public Use
  Company Number: US-CELLTRION INC.-2022US004191

PATIENT

DRUGS (2)
  1. TRUXIMA [Suspect]
     Active Substance: RITUXIMAB-ABBS
     Indication: Mantle cell lymphoma
     Dosage: 773 MG EVERY 21 DAYS ON 02/17
  2. TRUXIMA [Suspect]
     Active Substance: RITUXIMAB-ABBS
     Dosage: 773 MG EVERY 21 DAYS ON 03/10

REACTIONS (2)
  - Mantle cell lymphoma [Unknown]
  - Off label use [Unknown]
